FAERS Safety Report 4591091-6 (Version None)
Quarter: 2005Q1

REPORT INFORMATION
  Report Type: 
  Country: None (occurrence: None)
  Receive Date: 20050222
  Receipt Date: 20050222
  Transmission Date: 20050727
  Serious: Yes (Other)
  Sender: FDA-Public Use
  Company Number: None

PATIENT
  Age: 30 Day
  Sex: Female
  Weight: 53.0709 kg

DRUGS (1)
  1. VIOXX [Suspect]
     Indication: EPICONDYLITIS
     Dosage: 1 TABLET  TWICE A DAY
     Dates: start: 20040610, end: 20040715

REACTIONS (5)
  - CONTUSION [None]
  - FOOT DEFORMITY [None]
  - IMPAIRED HEALING [None]
  - INSOMNIA [None]
  - MUSCLE SPASMS [None]
